FAERS Safety Report 11719433 (Version 1)
Quarter: 2015Q4

REPORT INFORMATION
  Report Type: Spontaneous
  Country: CA (occurrence: CA)
  Receive Date: 20151110
  Receipt Date: 20151110
  Transmission Date: 20160304
  Serious: Yes (Other)
  Sender: FDA-Public Use
  Company Number: CA-PFIZER INC-2014206975

PATIENT
  Age: 48 Year
  Sex: Female

DRUGS (5)
  1. SOMAVERT [Suspect]
     Active Substance: PEGVISOMANT
     Dosage: 40 MG, ALTERNATE DAY (EVERY SECOND DAY)
     Route: 058
  2. SOMAVERT [Suspect]
     Active Substance: PEGVISOMANT
     Dosage: 15 MG, ALTERNATE DAY (EVERY 2ND DAY)
     Route: 058
  3. SOMAVERT [Suspect]
     Active Substance: PEGVISOMANT
     Dosage: 25 MG, EVERY OTHER DAY
  4. SOMAVERT [Suspect]
     Active Substance: PEGVISOMANT
     Dosage: 20 MG EVERY 2ND DAY
  5. SOMAVERT [Suspect]
     Active Substance: PEGVISOMANT
     Indication: ACROMEGALY
     Dosage: 20 MG, ALTERNATE DAY (EVERY SECOND DAY)
     Route: 058
     Dates: start: 2010

REACTIONS (4)
  - Abdominal distension [Recovering/Resolving]
  - Injection site haemorrhage [Recovered/Resolved]
  - Pituitary tumour benign [Not Recovered/Not Resolved]
  - Injection site swelling [Recovering/Resolving]

NARRATIVE: CASE EVENT DATE: 2010
